FAERS Safety Report 9206655 (Version 2)
Quarter: 2013Q2

REPORT INFORMATION
  Report Type: Spontaneous
  Country: US (occurrence: US)
  Receive Date: 20130403
  Receipt Date: 20130416
  Transmission Date: 20140414
  Serious: No
  Sender: FDA-Public Use
  Company Number: US-009507513-1304USA000241

PATIENT
  Age: 49 Year
  Sex: Female

DRUGS (3)
  1. ZOCOR [Suspect]
     Indication: BLOOD CHOLESTEROL INCREASED
     Dosage: 40 MG, BID
     Route: 048
     Dates: start: 201205, end: 201207
  2. ZOCOR [Suspect]
     Dosage: 20 MG, BID
     Route: 048
     Dates: start: 200910
  3. FLONASE [Concomitant]

REACTIONS (1)
  - Myalgia [Not Recovered/Not Resolved]
